FAERS Safety Report 4678021-3 (Version None)
Quarter: 2005Q2

REPORT INFORMATION
  Report Type: 
  Country: None (occurrence: None)
  Receive Date: 20050531
  Receipt Date: 20050509
  Transmission Date: 20051028
  Serious: Yes (Hospitalization)
  Sender: FDA-Public Use
  Company Number: AU-MERCK-0505AUS00123

PATIENT
  Age: 54 Year
  Sex: Male
  Weight: 96 kg

DRUGS (22)
  1. ZETIA [Suspect]
     Route: 048
     Dates: start: 20031117, end: 20031128
  2. CIPROFLOXACIN [Suspect]
     Indication: INFECTION
     Route: 048
     Dates: start: 20031129, end: 20031201
  3. FERROUS SULFATE [Suspect]
     Route: 048
     Dates: end: 20031201
  4. ATORVASTATIN CALCIUM [Suspect]
     Route: 048
     Dates: end: 20031201
  5. CARBIDOPA AND LEVODOPA [Suspect]
     Route: 048
     Dates: end: 20031128
  6. ROXITHROMYCIN [Suspect]
     Route: 048
     Dates: start: 20031126, end: 20031129
  7. LISINOPRIL [Concomitant]
     Route: 065
  8. METOPROLOL [Concomitant]
     Route: 065
  9. GLICLAZIDE [Concomitant]
     Route: 065
  10. METFORMIN [Concomitant]
     Route: 065
  11. ASPIRIN [Concomitant]
     Route: 065
  12. ALLOPURINOL [Concomitant]
     Route: 065
  13. GABAPENTIN [Concomitant]
     Route: 065
  14. INSULIN, BIPHASIC ISOPHANE [INJECTION] [Concomitant]
     Route: 065
  15. KETAMINE HYDROCHLORIDE [Concomitant]
     Route: 065
  16. MIRTAZAPINE [Concomitant]
     Route: 065
  17. FLUOXETINE [Concomitant]
     Route: 065
  18. FUROSEMIDE [Concomitant]
     Route: 065
  19. ESOMEPRAZOLE [Concomitant]
     Route: 065
  20. NITROGLYCERIN [Concomitant]
     Route: 065
  21. DIAZEPAM [Concomitant]
     Route: 065
  22. CLONAZEPAM [Concomitant]
     Route: 065

REACTIONS (6)
  - EYE IRRITATION [None]
  - HEADACHE [None]
  - LIVER FUNCTION TEST ABNORMAL [None]
  - MYALGIA [None]
  - PRURITUS [None]
  - RASH GENERALISED [None]
